FAERS Safety Report 20900411 (Version 1)
Quarter: 2022Q2

REPORT INFORMATION
  Report Type: Spontaneous
  Country: US (occurrence: None)
  Receive Date: 20220531
  Receipt Date: 20220531
  Transmission Date: 20220720
  Serious: Yes (Other)
  Sender: FDA-Public Use
  Company Number: None

PATIENT
  Age: 61 Year
  Sex: Male
  Weight: 99 kg

DRUGS (1)
  1. BACTRIM [Suspect]
     Active Substance: SULFAMETHOXAZOLE\TRIMETHOPRIM
     Indication: Prostatitis
     Dosage: FREQUENCY : TWICE A DAY;?
     Route: 048
     Dates: end: 20220423

REACTIONS (5)
  - Prostatitis [None]
  - Haematuria [None]
  - Activated partial thromboplastin time prolonged [None]
  - Factor VIII inhibition [None]
  - Haemorrhage [None]

NARRATIVE: CASE EVENT DATE: 20220423
